FAERS Safety Report 9345445 (Version 2)
Quarter: 2013Q3

REPORT INFORMATION
  Report Type: Report from Study
  Country: BR (occurrence: BR)
  Receive Date: 20130613
  Receipt Date: 20130820
  Transmission Date: 20140515
  Serious: Yes (Disabling, Other)
  Sender: FDA-Public Use
  Company Number: BR-ROCHE-1235691

PATIENT
  Sex: Female
  Weight: 63 kg

DRUGS (5)
  1. MABTHERA [Suspect]
     Indication: RHEUMATOID ARTHRITIS
     Route: 065
     Dates: start: 20110707
  2. MABTHERA [Suspect]
     Route: 065
     Dates: start: 20130313
  3. METHYLPREDNISOLONE [Suspect]
     Indication: PREMEDICATION
     Route: 065
  4. METHOTREXATE [Concomitant]
  5. PRELONE [Concomitant]

REACTIONS (2)
  - Local swelling [Unknown]
  - Gait disturbance [Unknown]
